FAERS Safety Report 5740968-4 (Version None)
Quarter: 2008Q2

REPORT INFORMATION
  Report Type: 
  Country: None (occurrence: None)
  Receive Date: 20080516
  Receipt Date: 20080512
  Transmission Date: 20081010
  Serious: Yes (Other)
  Sender: FDA-Public Use
  Company Number: US-PFIZER INC-2008025870

PATIENT
  Sex: Female
  Weight: 108 kg

DRUGS (7)
  1. CHANTIX [Suspect]
     Indication: SMOKING CESSATION THERAPY
     Route: 048
  2. MICARDIS [Concomitant]
  3. BUPROPION HYDROCHLORIDE [Concomitant]
  4. OXYBUTYNIN CHLORIDE [Concomitant]
  5. VITAMINS [Concomitant]
  6. MOTRIN [Concomitant]
  7. OXYGEN [Concomitant]

REACTIONS (5)
  - BRONCHITIS [None]
  - CONSTIPATION [None]
  - NAUSEA [None]
  - NIGHTMARE [None]
  - WEIGHT DECREASED [None]
